FAERS Safety Report 23779532 (Version 1)
Quarter: 2024Q2

REPORT INFORMATION
  Report Type: Spontaneous
  Country: NL (occurrence: NL)
  Receive Date: 20240424
  Receipt Date: 20240424
  Transmission Date: 20240716
  Serious: Yes (Life-Threatening, Hospitalization)
  Sender: FDA-Public Use
  Company Number: None

PATIENT
  Age: 78 Year
  Sex: Female
  Weight: 58 kg

DRUGS (2)
  1. PREDNISOLONE [Suspect]
     Active Substance: PREDNISOLONE
     Indication: Giant cell arteritis
     Dosage: 1D2T/ BRAND NAME NOT SPECIFIED
     Route: 065
     Dates: start: 20240210
  2. TOCILIZUMAB [Suspect]
     Active Substance: TOCILIZUMAB
     Indication: Giant cell arteritis
     Dosage: 1X PER WEEK/ TOCILIZUMAB INJVLST / BRAND NAME NOT SPECIFIED
     Route: 065
     Dates: start: 20240216, end: 20240225

REACTIONS (1)
  - Diverticular perforation [Recovering/Resolving]
